FAERS Safety Report 5644499-1 (Version None)
Quarter: 2008Q1

REPORT INFORMATION
  Report Type: 
  Country: None (occurrence: None)
  Receive Date: 20080229
  Receipt Date: 20070124
  Transmission Date: 20080703
  Serious: No
  Sender: FDA-Public Use
  Company Number: A0636854A

PATIENT
  Age: 55 Year
  Sex: Male

DRUGS (4)
  1. VALTREX [Suspect]
     Indication: GENITAL HERPES
     Dosage: 500MG PER DAY
     Route: 048
     Dates: start: 20060101
  2. SYNTHROID [Concomitant]
  3. FLOMAX [Concomitant]
  4. CRESTOR [Concomitant]

REACTIONS (1)
  - PHARYNGOLARYNGEAL PAIN [None]
